FAERS Safety Report 5708368-0 (Version None)
Quarter: 2008Q2

REPORT INFORMATION
  Report Type: 
  Country: None (occurrence: None)
  Receive Date: 20080417
  Receipt Date: 20080408
  Transmission Date: 20081010
  Serious: Yes (Hospitalization)
  Sender: FDA-Public Use
  Company Number: FR-PFIZER INC-2008031182

PATIENT
  Sex: Female
  Weight: 69 kg

DRUGS (2)
  1. CHAMPIX [Suspect]
     Indication: SMOKING CESSATION THERAPY
     Route: 048
     Dates: start: 20080101, end: 20080207
  2. TRIPHASIL-21 [Suspect]
     Dosage: TEXT:I TABLET
     Route: 048
     Dates: start: 20010101, end: 20080207

REACTIONS (1)
  - THROMBOPHLEBITIS [None]
